APPROVED DRUG PRODUCT: DICLOFENAC SODIUM
Active Ingredient: DICLOFENAC SODIUM
Strength: 1%
Dosage Form/Route: GEL;TOPICAL
Application: A210986 | Product #001
Applicant: ENCUBE ETHICALS PRIVATE LTD
Approved: Jan 27, 2020 | RLD: No | RS: No | Type: OTC